FAERS Safety Report 12768980 (Version 1)
Quarter: 2016Q3

REPORT INFORMATION
  Report Type: Spontaneous
  Country: US (occurrence: US)
  Receive Date: 20160921
  Receipt Date: 20160921
  Transmission Date: 20161109
  Serious: No
  Sender: FDA-Public Use
  Company Number: US-JAZZ-2016-US-010367

PATIENT
  Sex: Female

DRUGS (15)
  1. XYREM [Suspect]
     Active Substance: SODIUM OXYBATE
     Indication: NARCOLEPSY
     Dosage: 2.25 G, BID
     Route: 048
     Dates: start: 201604, end: 201604
  2. ADVAIR HFA [Concomitant]
     Active Substance: FLUTICASONE PROPIONATE\SALMETEROL XINAFOATE
  3. ZOLMITRIPTAN. [Concomitant]
     Active Substance: ZOLMITRIPTAN
  4. CLOBETASOL [Concomitant]
     Active Substance: CLOBETASOL
  5. FIORICET [Concomitant]
     Active Substance: ACETAMINOPHEN\BUTALBITAL\CAFFEINE
  6. VENTOLIN HFA [Concomitant]
     Active Substance: ALBUTEROL SULFATE
  7. XYREM [Suspect]
     Active Substance: SODIUM OXYBATE
     Dosage: 3 G, BID
     Route: 048
     Dates: start: 201604, end: 201605
  8. XYREM [Suspect]
     Active Substance: SODIUM OXYBATE
     Dosage: 3.75 G, BID
     Route: 048
     Dates: start: 201605
  9. FLUTICASONE PROPRIONATE [Concomitant]
     Active Substance: FLUTICASONE PROPIONATE
  10. FERROUS SULFATE. [Concomitant]
     Active Substance: FERROUS SULFATE
  11. FLUOCINOLONE OIL [Concomitant]
  12. NUVIGIL [Concomitant]
     Active Substance: ARMODAFINIL
  13. BIOTIN [Concomitant]
     Active Substance: BIOTIN
  14. EPIPEN [Concomitant]
     Active Substance: EPINEPHRINE
  15. OMEPRAZOLE DR [Concomitant]
     Active Substance: OMEPRAZOLE

REACTIONS (1)
  - Migraine [Unknown]

NARRATIVE: CASE EVENT DATE: 2016
